FAERS Safety Report 19221079 (Version 2)
Quarter: 2021Q3

REPORT INFORMATION
  Report Type: Spontaneous
  Country: DE (occurrence: DE)
  Receive Date: 20210505
  Receipt Date: 20210709
  Transmission Date: 20211014
  Serious: Yes (Other)
  Sender: FDA-Public Use
  Company Number: DE-ANIPHARMA-2021-DE-000083

PATIENT
  Age: 70 Year
  Sex: Female

DRUGS (6)
  1. TAMOXIFEN [Suspect]
     Active Substance: TAMOXIFEN
  2. FASLODEX [Suspect]
     Active Substance: FULVESTRANT
     Route: 030
  3. PALBOCICLIB [Suspect]
     Active Substance: PALBOCICLIB
     Dosage: 125 MG UNK
     Route: 065
  4. AFINITOR [Suspect]
     Active Substance: EVEROLIMUS
     Dosage: UNK / 5 MG DAILY / 10 MG DAILY
     Route: 065
  5. EXEMESTANE. [Suspect]
     Active Substance: EXEMESTANE
     Route: 065
     Dates: start: 2014
  6. ANASTROZOLE. [Suspect]
     Active Substance: ANASTROZOLE
     Indication: PRODUCT USED FOR UNKNOWN INDICATION
     Route: 048

REACTIONS (33)
  - Blood lactate dehydrogenase increased [Unknown]
  - Immunoglobulins decreased [Unknown]
  - Red blood cell count decreased [Recovered/Resolved]
  - Tumour marker increased [Recovering/Resolving]
  - Malignant neoplasm progression [Unknown]
  - Dyspnoea [Unknown]
  - Metastases to liver [Unknown]
  - Globulins decreased [Unknown]
  - Nasal dryness [Unknown]
  - Pain [Unknown]
  - Abdominal discomfort [Unknown]
  - White blood cell count decreased [Recovered/Resolved]
  - Therapeutic product effect decreased [Unknown]
  - Breast cancer recurrent [Unknown]
  - Muscle spasms [Unknown]
  - Angina pectoris [Unknown]
  - Sleep disorder [Unknown]
  - Haemoglobin decreased [Recovered/Resolved]
  - Lymphocyte count decreased [Unknown]
  - Anosmia [Recovering/Resolving]
  - Impaired healing [Unknown]
  - Myocardial infarction [Unknown]
  - Gait disturbance [Unknown]
  - Haematocrit decreased [Recovered/Resolved]
  - Contusion [Unknown]
  - Colitis microscopic [Unknown]
  - Mouth swelling [Unknown]
  - Bone density abnormal [Unknown]
  - Gene mutation [Unknown]
  - Mobility decreased [Unknown]
  - Taste disorder [Recovered/Resolved]
  - Drug intolerance [Unknown]
  - Burning feet syndrome [Recovering/Resolving]

NARRATIVE: CASE EVENT DATE: 201408
